FAERS Safety Report 5833151-5 (Version None)
Quarter: 2008Q3

REPORT INFORMATION
  Report Type: 
  Country: None (occurrence: None)
  Receive Date: 20080731
  Receipt Date: 20080722
  Transmission Date: 20090109
  Serious: Yes (Hospitalization)
  Sender: FDA-Public Use
  Company Number: CLOF-1000179

PATIENT
  Age: 68 Year
  Sex: Female
  Weight: 65.2 kg

DRUGS (4)
  1. CLOFARABINE (CLOFARABINE) SOLUTION FOR INFUSION [Suspect]
     Indication: STEM CELL TRANSPLANT
     Dosage: 30 MG/M2, QD, INTRAVENOUS
     Route: 042
     Dates: start: 20080426, end: 20080428
  2. BUSULFAN (BUSULFAN) [Suspect]
     Indication: STEM CELL TRANSPLANT
     Dosage: 3.2 MG/KG, QD, INTRAVENOUS
     Route: 042
     Dates: start: 20080427, end: 20080430
  3. URSODIOL [Concomitant]
  4. CYCLOSPORINE [Concomitant]

REACTIONS (23)
  - ABDOMINAL DISTENSION [None]
  - ABDOMINAL PAIN [None]
  - ASCITES [None]
  - BLOOD CREATININE INCREASED [None]
  - CHOLELITHIASIS [None]
  - CULTURE STOOL POSITIVE [None]
  - CULTURE URINE POSITIVE [None]
  - DIARRHOEA [None]
  - DISCOMFORT [None]
  - ENTEROCOCCAL INFECTION [None]
  - GRAFT VERSUS HOST DISEASE [None]
  - HEPATIC FIBROSIS [None]
  - HEPATOSPLENOMEGALY [None]
  - HYPERGLYCAEMIA [None]
  - HYPOMAGNESAEMIA [None]
  - LIVER DISORDER [None]
  - NAUSEA [None]
  - PANCYTOPENIA [None]
  - PLEURAL EFFUSION [None]
  - PORTAL VEIN THROMBOSIS [None]
  - THROMBOCYTOPENIA [None]
  - VARICOSE VEIN [None]
  - VOMITING [None]
